FAERS Safety Report 4308801-5 (Version None)
Quarter: 2004Q1

REPORT INFORMATION
  Report Type: 
  Country: None (occurrence: None)
  Receive Date: 20040301
  Receipt Date: 20040301
  Transmission Date: 20041129
  Serious: Yes (Hospitalization)
  Sender: FDA-Public Use
  Company Number: None

PATIENT
  Age: 55 Year
  Sex: Female
  Weight: 76.5 kg

DRUGS (12)
  1. SEROQUEL [Suspect]
     Indication: BIPOLAR DISORDER
     Dosage: 1000 MG PO QD
  2. SEROQUEL [Suspect]
     Indication: BIPOLAR I DISORDER
     Dosage: 1000 MG PO QD
  3. KLONOPIN [Concomitant]
  4. LEXAPRO [Concomitant]
  5. SYNTHROID [Concomitant]
  6. AMBIEN [Concomitant]
  7. REQUIP [Concomitant]
  8. HYDROCHLOROTHIAZIDE [Concomitant]
  9. ZELNORM [Concomitant]
  10. MIRALAT [Concomitant]
  11. DEPAKOTE [Concomitant]
  12. ZETIA [Concomitant]

REACTIONS (6)
  - AMNESIA [None]
  - ANXIETY [None]
  - AURA [None]
  - CONFUSIONAL STATE [None]
  - MANIA [None]
  - SYNCOPE [None]
